FAERS Safety Report 6042018-1 (Version None)
Quarter: 2009Q1

REPORT INFORMATION
  Report Type: 
  Country: None (occurrence: None)
  Receive Date: 20090116
  Receipt Date: 20090105
  Transmission Date: 20090719
  Serious: Yes (Death)
  Sender: FDA-Public Use
  Company Number: US-MERCK-0901USA00953

PATIENT
  Age: 46 Year
  Sex: Male

DRUGS (4)
  1. TIAMATE [Suspect]
     Route: 048
  2. AMLODIPINE [Suspect]
     Route: 048
  3. LABETALOL HYDROCHLORIDE [Suspect]
     Route: 048
  4. LORATADINE [Suspect]
     Route: 048

REACTIONS (10)
  - ABDOMINAL PAIN [None]
  - BRADYCARDIA [None]
  - CARDIAC ARREST [None]
  - CARDIOMEGALY [None]
  - CORONARY ARTERY DISEASE [None]
  - HYPOTENSION [None]
  - INCORRECT DOSE ADMINISTERED [None]
  - MEDICATION ERROR [None]
  - NAUSEA [None]
  - OVERDOSE [None]
